FAERS Safety Report 6209141-X (Version None)
Quarter: 2009Q2

REPORT INFORMATION
  Report Type: 
  Country: None (occurrence: None)
  Receive Date: 20090522
  Receipt Date: 20090126
  Transmission Date: 20091009
  Serious: No
  Sender: FDA-Public Use
  Company Number: 8041162

PATIENT
  Age: 51 Year
  Sex: Female
  Weight: 67.3 kg

DRUGS (15)
  1. CIMZIA [Suspect]
     Indication: CROHN'S DISEASE
     Dosage: 400 MG SC
     Route: 058
     Dates: start: 20081001
  2. EFFEXOR [Concomitant]
  3. TRAZODONE HCL [Concomitant]
  4. LASIX [Concomitant]
  5. HYDROCHLOROTHIAZIDE [Concomitant]
  6. PRILOSEC [Concomitant]
  7. CALCIUM [Concomitant]
  8. REGLAN [Concomitant]
  9. PHENERGAN [Concomitant]
  10. PROPRANOLOL HYDROCHLORIDE [Concomitant]
  11. HYDROCODONE BITARTRATE [Concomitant]
  12. SYNTHROID [Concomitant]
  13. METHOTREXATE [Concomitant]
  14. POTASSIUM CHLORIDE [Concomitant]
  15. CALCIUM D [Concomitant]

REACTIONS (9)
  - ABDOMINAL PAIN [None]
  - BOWEL MOVEMENT IRREGULARITY [None]
  - DIARRHOEA [None]
  - DRUG EFFECT DECREASED [None]
  - FEEDING DISORDER [None]
  - MOUTH ULCERATION [None]
  - MUSCLE SPASMS [None]
  - NAUSEA [None]
  - VOMITING [None]
